FAERS Safety Report 5988503-X (Version None)
Quarter: 2008Q4

REPORT INFORMATION
  Report Type: 
  Country: None (occurrence: None)
  Receive Date: 20081208
  Receipt Date: 20081208
  Transmission Date: 20090506
  Serious: Yes (Other)
  Sender: FDA-Public Use
  Company Number: None

PATIENT
  Age: 58 Year
  Sex: Female
  Weight: 68.0396 kg

DRUGS (1)
  1. NEOSPORIN [Suspect]

REACTIONS (3)
  - PRURITUS [None]
  - RASH [None]
  - SIMILAR REACTION ON PREVIOUS EXPOSURE TO DRUG [None]
